FAERS Safety Report 5552107-3 (Version None)
Quarter: 2007Q4

REPORT INFORMATION
  Report Type: 
  Country: None (occurrence: None)
  Receive Date: 20071212
  Receipt Date: 20070608
  Transmission Date: 20080405
  Serious: No
  Sender: FDA-Public Use
  Company Number: US-AMGEN-KDL224818

PATIENT
  Sex: Female

DRUGS (10)
  1. ENBREL [Suspect]
     Indication: RHEUMATOID ARTHRITIS
     Route: 058
     Dates: start: 20031101
  2. METHOTREXATE [Concomitant]
     Dates: start: 20000601
  3. PLAQUENIL [Concomitant]
     Dates: start: 20030101
  4. PREDNISONE [Concomitant]
     Dates: start: 20010101
  5. FOLIC ACID [Concomitant]
     Dates: start: 20031101
  6. FOSAMAX [Concomitant]
     Dates: start: 20031101
  7. CALCIUM [Concomitant]
     Dates: start: 20031101
  8. VITAMIN D [Concomitant]
     Dates: start: 20031101
  9. PERCOCET [Concomitant]
     Dates: start: 20041101
  10. MINOCIN [Concomitant]
     Dates: start: 20041101

REACTIONS (2)
  - HERPES ZOSTER [None]
  - INJECTION SITE IRRITATION [None]
